FAERS Safety Report 21064440 (Version 2)
Quarter: 2022Q3

REPORT INFORMATION
  Report Type: Report from Study
  Country: US (occurrence: US)
  Receive Date: 20220711
  Receipt Date: 20220902
  Transmission Date: 20221026
  Serious: No
  Sender: FDA-Public Use
  Company Number: US-BIOGEN-2022BI01136109

PATIENT
  Age: 70 Year
  Sex: Female

DRUGS (7)
  1. ADUHELM [Suspect]
     Active Substance: ADUCANUMAB-AVWA
     Indication: Dementia Alzheimer^s type
     Dosage: INFUSIONS 1
     Route: 050
     Dates: start: 20211027
  2. ADUHELM [Suspect]
     Active Substance: ADUCANUMAB-AVWA
     Dosage: INFUSIONS 2
     Route: 050
     Dates: start: 20211124
  3. ADUHELM [Suspect]
     Active Substance: ADUCANUMAB-AVWA
     Dosage: INFUSIONS 3
     Route: 050
     Dates: start: 20211222
  4. ADUHELM [Suspect]
     Active Substance: ADUCANUMAB-AVWA
     Dosage: INFUSIONS 4
     Route: 050
     Dates: start: 20220119
  5. ADUHELM [Suspect]
     Active Substance: ADUCANUMAB-AVWA
     Dosage: INFUSION 5
     Route: 050
     Dates: start: 20220216
  6. ADUHELM [Suspect]
     Active Substance: ADUCANUMAB-AVWA
     Dosage: INFUSION 6
     Route: 050
     Dates: start: 20220316
  7. ADUHELM [Suspect]
     Active Substance: ADUCANUMAB-AVWA
     Dosage: MAINTENANCE DOSE
     Route: 050
     Dates: start: 20220413, end: 20220601

REACTIONS (1)
  - Amyloid related imaging abnormality-microhaemorrhages and haemosiderin deposits [Not Recovered/Not Resolved]

NARRATIVE: CASE EVENT DATE: 20220622
